FAERS Safety Report 6569485-9 (Version None)
Quarter: 2010Q1

REPORT INFORMATION
  Report Type: 
  Country: None (occurrence: None)
  Receive Date: 20100204
  Receipt Date: 20091224
  Transmission Date: 20100710
  Serious: Yes (Hospitalization)
  Sender: FDA-Public Use
  Company Number: FR-PFIZER INC-2009302560

PATIENT
  Age: 58 Year
  Sex: Male
  Weight: 51 kg

DRUGS (16)
  1. *SORAFENIB [Suspect]
     Indication: HEPATIC NEOPLASM MALIGNANT RECURRENT
     Dosage: 400 MG, UNK
     Route: 048
     Dates: start: 20091021
  2. XANAX [Suspect]
     Indication: DEPRESSIVE SYMPTOM
     Dosage: UNK
     Dates: start: 20091202
  3. TOPALGIC [Suspect]
     Indication: PAIN
     Dosage: UNK
     Dates: start: 20091201
  4. OXYNORM [Suspect]
     Indication: PAIN
     Dosage: UNK
     Dates: start: 20091202
  5. NEURONTIN [Suspect]
     Dosage: 300 MG, 1X/DAY
     Dates: start: 20091114
  6. STILNOX [Suspect]
     Indication: INSOMNIA
     Dosage: UNK
     Dates: start: 20091202
  7. TRAMADOL [Suspect]
     Indication: HEADACHE
     Dosage: UNK
     Dates: start: 20091114, end: 20091201
  8. GARDENAL ^AVENTIS^ [Concomitant]
     Indication: EPILEPSY
     Dosage: 100 MG, 1X/DAY
     Dates: start: 19990101
  9. CLARITIN [Concomitant]
     Indication: SEASONAL ALLERGY
     Dosage: 1 DF, AS NEEDED
     Dates: start: 20000101
  10. OMEPRAZOLE [Concomitant]
     Indication: PAIN PROPHYLAXIS
     Dosage: 2 DF, AS NEEDED
     Dates: start: 20090801
  11. PARACETAMOL [Concomitant]
     Indication: PAIN
     Dosage: 2 DF, AS NEEDED
     Dates: start: 20090801, end: 20091027
  12. ACTIFED [Concomitant]
     Indication: RHINITIS ALLERGIC
     Dosage: UNK
     Dates: start: 20071010, end: 20091027
  13. EFFEXOR [Concomitant]
     Indication: DEPRESSIVE SYMPTOM
     Dosage: 75 MG, 1X/DAY
     Dates: start: 20091023
  14. PROPOFAN [Concomitant]
     Indication: PAIN
     Dosage: 10 DF, AS NEEDED
     Dates: start: 20091027
  15. PARACETAMOL (IXPRIM) [Concomitant]
     Indication: HEADACHE
     Dosage: 6 DF, 1X/DAY
     Dates: start: 20090801, end: 20091027
  16. EQUANIL [Concomitant]
     Indication: DEPRESSION
     Dosage: UNK
     Dates: start: 20091202

REACTIONS (2)
  - CONFUSIONAL STATE [None]
  - MALNUTRITION [None]
